FAERS Safety Report 19408708 (Version 1)
Quarter: 2021Q2

REPORT INFORMATION
  Report Type: Spontaneous
  Country: US (occurrence: US)
  Receive Date: 20210613
  Receipt Date: 20210613
  Transmission Date: 20210717
  Serious: No
  Sender: FDA-Public Use
  Company Number: US-SA-2021SA192887

PATIENT
  Sex: Female

DRUGS (1)
  1. DUPIXENT [Suspect]
     Active Substance: DUPILUMAB
     Indication: ESSENTIAL HYPERTENSION
     Dosage: 300 MG, QOW
     Route: 058

REACTIONS (4)
  - Erythema [Recovered/Resolved]
  - Product use in unapproved indication [Unknown]
  - Sunburn [Recovered/Resolved]
  - Feeling hot [Recovered/Resolved]
